FAERS Safety Report 20512489 (Version 1)
Quarter: 2022Q1

REPORT INFORMATION
  Report Type: Spontaneous
  Country: US (occurrence: None)
  Receive Date: 20220223
  Receipt Date: 20220223
  Transmission Date: 20220423
  Serious: Yes (Hospitalization)
  Sender: FDA-Public Use
  Company Number: None

PATIENT
  Age: 33 Year
  Sex: Male

DRUGS (1)
  1. AJOVY [Suspect]
     Active Substance: FREMANEZUMAB-VFRM
     Indication: Migraine without aura
     Dosage: OTHER FREQUENCY : QM;?
     Route: 058
     Dates: start: 20191129

REACTIONS (1)
  - Cardiac ablation [None]

NARRATIVE: CASE EVENT DATE: 20220221
